FAERS Safety Report 19846874 (Version 1)
Quarter: 2021Q3

REPORT INFORMATION
  Report Type: Spontaneous
  Country: US (occurrence: US)
  Receive Date: 20210917
  Receipt Date: 20210917
  Transmission Date: 20211014
  Serious: Yes (Other)
  Sender: FDA-Public Use
  Company Number: None

PATIENT
  Age: 52 Year
  Sex: Male
  Weight: 77.4 kg

DRUGS (16)
  1. BETA GLUCAN [Concomitant]
     Active Substance: BETA GLUCAN
  2. ALPHA LIPOIC ACID [Concomitant]
     Active Substance: .ALPHA.-LIPOIC ACID
  3. EXTRACT [Concomitant]
  4. REGEN?COV [Suspect]
     Active Substance: CASIRIVIMAB\IMDEVIMAB
     Indication: COVID-19
     Dosage: ?          OTHER ROUTE:4 INJECTIONS. 1 EA ARM + 2 IN STOMACH?
     Dates: start: 20210913, end: 20210913
  5. NAC [Concomitant]
  6. GINGER. [Concomitant]
     Active Substance: GINGER
  7. DIGESTIVE ENZYMES [Concomitant]
     Active Substance: UNSPECIFIED INGREDIENT
  8. GLUTATHIONE [Concomitant]
     Active Substance: GLUTATHIONE
  9. ELDERBERRY [Concomitant]
     Active Substance: HERBALS
  10. CURCUMIN [Concomitant]
     Active Substance: CURCUMIN
  11. BROCCOLI SEED EXTRACT [Concomitant]
  12. VITAMIN D3 [Concomitant]
     Active Substance: CHOLECALCIFEROL
  13. PROBIOTICS [Concomitant]
     Active Substance: PROBIOTICS NOS
  14. OLIVE LEAF [Concomitant]
  15. ZIINC [Concomitant]
  16. SELENIUM [Concomitant]
     Active Substance: SELENIUM

REACTIONS (3)
  - Lip swelling [None]
  - Arthritis [None]
  - Disease complication [None]

NARRATIVE: CASE EVENT DATE: 20210915
